FAERS Safety Report 9649133 (Version 1)
Quarter: 2013Q4

REPORT INFORMATION
  Report Type: Spontaneous
  Country: US (occurrence: US)
  Receive Date: 20131028
  Receipt Date: 20131028
  Transmission Date: 20140711
  Serious: No
  Sender: FDA-Public Use
  Company Number: -SAAVPROD-POMP-1003101

PATIENT
  Age: 54 Year
  Sex: Male

DRUGS (1)
  1. ALGLUCOSIDASE ALFA [Suspect]
     Indication: GLYCOGEN STORAGE DISEASE TYPE II
     Dosage: 1950 MG, Q2W
     Route: 042

REACTIONS (3)
  - Mobility decreased [Unknown]
  - Dysphagia [Unknown]
  - Dyspnoea [Unknown]
